FAERS Safety Report 12206509 (Version 3)
Quarter: 2016Q2

REPORT INFORMATION
  Report Type: Spontaneous
  Country: US (occurrence: US)
  Receive Date: 20160324
  Receipt Date: 20160429
  Transmission Date: 20160815
  Serious: Yes (Hospitalization)
  Sender: FDA-Public Use
  Company Number: US-BEH-2016060298

PATIENT
  Age: 48 Year
  Sex: Male
  Weight: 157 kg

DRUGS (40)
  1. HIZENTRA [Suspect]
     Active Substance: HUMAN IMMUNOGLOBULIN G
     Indication: HYPOGAMMAGLOBULINAEMIA
     Dosage: 1 GM 5 ML VIAL
     Route: 058
  2. CYMBALTA [Concomitant]
     Active Substance: DULOXETINE HYDROCHLORIDE
  3. RESTASIS [Concomitant]
     Active Substance: CYCLOSPORINE
  4. FINASTERIDE. [Concomitant]
     Active Substance: FINASTERIDE
  5. ACETAMINOPHEN\HYDROCODONE BITARTRATE [Concomitant]
     Active Substance: ACETAMINOPHEN\HYDROCODONE BITARTRATE
  6. MUCINEX D [Concomitant]
     Active Substance: GUAIFENESIN\PSEUDOEPHEDRINE HYDROCHLORIDE
  7. FUROSEMIDE. [Concomitant]
     Active Substance: FUROSEMIDE
  8. OSCAL D [Concomitant]
     Active Substance: CALCIUM CARBONATE\CHOLECALCIFEROL
  9. SELENIUM SULFIDE. [Concomitant]
     Active Substance: SELENIUM SULFIDE
  10. CARDIZEM [Concomitant]
     Active Substance: DILTIAZEM HYDROCHLORIDE
  11. PREDNISONE. [Concomitant]
     Active Substance: PREDNISONE
  12. AMITRIPTYLINE [Concomitant]
     Active Substance: AMITRIPTYLINE
  13. LISINOPRIL. [Concomitant]
     Active Substance: LISINOPRIL
  14. EVOXAC [Concomitant]
     Active Substance: CEVIMELINE HYDROCHLORIDE
  15. ISOSORBIDE DINITRATE. [Concomitant]
     Active Substance: ISOSORBIDE DINITRATE
  16. LACTULOSE. [Concomitant]
     Active Substance: LACTULOSE
  17. NASONEX [Concomitant]
     Active Substance: MOMETASONE FUROATE
  18. FENTANYL. [Concomitant]
     Active Substance: FENTANYL
  19. MOBIC [Concomitant]
     Active Substance: MELOXICAM
  20. VITAMIN D3 [Concomitant]
     Active Substance: CHOLECALCIFEROL
  21. EPIPEN [Concomitant]
     Active Substance: EPINEPHRINE
  22. LIPITOR [Concomitant]
     Active Substance: ATORVASTATIN CALCIUM
  23. ASPIRIN. [Concomitant]
     Active Substance: ASPIRIN
  24. PLAVIX [Concomitant]
     Active Substance: CLOPIDOGREL BISULFATE
  25. FOSAMAX [Concomitant]
     Active Substance: ALENDRONATE SODIUM
  26. ADVAIR HFA [Concomitant]
     Active Substance: FLUTICASONE PROPIONATE\SALMETEROL XINAFOATE
  27. METFORMIN [Concomitant]
     Active Substance: METFORMIN HYDROCHLORIDE
  28. XOPENEX [Concomitant]
     Active Substance: LEVALBUTEROL HYDROCHLORIDE
  29. TAMIFLU [Concomitant]
     Active Substance: OSELTAMIVIR PHOSPHATE
  30. PRIMIDONE. [Concomitant]
     Active Substance: PRIMIDONE
  31. HIZENTRA [Suspect]
     Active Substance: HUMAN IMMUNOGLOBULIN G
     Indication: IMMUNODEFICIENCY COMMON VARIABLE
     Dosage: 2 GM 10 ML VIALS
     Route: 058
  32. OXYGEN. [Concomitant]
     Active Substance: OXYGEN
  33. POTASSIUM CHLORIDE. [Concomitant]
     Active Substance: POTASSIUM CHLORIDE
  34. CLOBETASOL [Concomitant]
     Active Substance: CLOBETASOL
  35. DIPHENHYDRAMINE. [Concomitant]
     Active Substance: DIPHENHYDRAMINE
  36. GABAPENTIN. [Concomitant]
     Active Substance: GABAPENTIN
  37. SINGULAIR [Concomitant]
     Active Substance: MONTELUKAST SODIUM
  38. CLONAZEPAM. [Concomitant]
     Active Substance: CLONAZEPAM
  39. LUNESTA [Concomitant]
     Active Substance: ESZOPICLONE
  40. ZYRTEC [Concomitant]
     Active Substance: CETIRIZINE HYDROCHLORIDE

REACTIONS (2)
  - Upper respiratory tract infection [Unknown]
  - Cardiac failure [Unknown]

NARRATIVE: CASE EVENT DATE: 20160229
